FAERS Safety Report 26129819 (Version 2)
Quarter: 2025Q4

REPORT INFORMATION
  Report Type: Spontaneous
  Country: JP (occurrence: JP)
  Receive Date: 20251208
  Receipt Date: 20251219
  Transmission Date: 20260118
  Serious: Yes (Other)
  Sender: ALEXION PHARMACEUTICALS
  Company Number: JP-ASTRAZENECA-202512JPN000912JP

PATIENT
  Age: 8 Decade
  Sex: Female

DRUGS (5)
  1. DAPAGLIFLOZIN [Suspect]
     Active Substance: DAPAGLIFLOZIN
     Indication: Cardiac failure chronic
     Dosage: 10 MILLIGRAM
     Route: 065
  2. SACUBITRIL [Concomitant]
     Active Substance: SACUBITRIL
     Dosage: 400 MG
  3. VALSARTAN [Concomitant]
     Active Substance: VALSARTAN
     Dosage: 400 MG
  4. CARVEDILOL [Concomitant]
     Active Substance: CARVEDILOL
     Dosage: 5 MG
  5. EPLERENONE [Concomitant]
     Active Substance: EPLERENONE
     Dosage: 25 MG

REACTIONS (1)
  - Cardiac failure chronic [Unknown]
